FAERS Safety Report 6010178-4 (Version None)
Quarter: 2008Q4

REPORT INFORMATION
  Report Type: 
  Country: None (occurrence: None)
  Receive Date: 20081217
  Receipt Date: 20081217
  Transmission Date: 20090506
  Serious: Yes (Other)
  Sender: FDA-Public Use
  Company Number: None

PATIENT
  Age: 71 Year
  Sex: Male
  Weight: 80.2867 kg

DRUGS (1)
  1. ATRIPLA [Suspect]
     Indication: HIV INFECTION
     Dosage: 1 AT BEDTIME
     Dates: start: 20081113

REACTIONS (6)
  - ABNORMAL DREAMS [None]
  - DISTURBANCE IN ATTENTION [None]
  - EAR DISCOMFORT [None]
  - FEELING ABNORMAL [None]
  - NIGHTMARE [None]
  - SLEEP DISORDER [None]
